FAERS Safety Report 6868469-0 (Version None)
Quarter: 2010Q3

REPORT INFORMATION
  Report Type: 
  Country: None (occurrence: None)
  Receive Date: 20100722
  Receipt Date: 20080528
  Transmission Date: 20110219
  Serious: No
  Sender: FDA-Public Use
  Company Number: US-PFIZER INC-2008046288

PATIENT
  Sex: Male
  Weight: 70.454 kg

DRUGS (9)
  1. CHANTIX [Suspect]
     Indication: SMOKING CESSATION THERAPY
     Route: 048
     Dates: start: 20080512
  2. RELAFEN [Concomitant]
     Indication: ARTHRITIS
  3. TRIAMCINOLONE ACETONIDE [Concomitant]
  4. ZYRTEC [Concomitant]
  5. XANAX [Concomitant]
  6. HYDROCHLOROTHIAZIDE [Concomitant]
  7. AMLODIPINE [Concomitant]
  8. DESERIL [Concomitant]
  9. DRUG, UNSPECIFIED [Concomitant]

REACTIONS (2)
  - ABNORMAL DREAMS [None]
  - NAUSEA [None]
